FAERS Safety Report 14456254 (Version 1)
Quarter: 2018Q1

REPORT INFORMATION
  Report Type: Report from Study
  Country: GB (occurrence: GB)
  Receive Date: 20180130
  Receipt Date: 20180130
  Transmission Date: 20180509
  Serious: Yes (Hospitalization, Other)
  Sender: FDA-Public Use
  Company Number: GB-AMGEN-GBRSL2017188238

PATIENT
  Sex: Female

DRUGS (2)
  1. ARANESP [Suspect]
     Active Substance: DARBEPOETIN ALFA
     Indication: PRODUCT USED FOR UNKNOWN INDICATION
     Dosage: 40 MUG, UNK
     Route: 065
  2. ARANESP [Suspect]
     Active Substance: DARBEPOETIN ALFA
     Dosage: UNK, QWK
     Route: 065

REACTIONS (4)
  - Malaise [Not Recovered/Not Resolved]
  - Dehydration [Unknown]
  - Anaemia [Unknown]
  - Diarrhoea [Not Recovered/Not Resolved]
